FAERS Safety Report 12383241 (Version 2)
Quarter: 2016Q2

REPORT INFORMATION
  Report Type: Spontaneous
  Country: US (occurrence: US)
  Receive Date: 20160518
  Receipt Date: 20160615
  Transmission Date: 20160815
  Serious: Yes (Other)
  Sender: FDA-Public Use
  Company Number: US-CELGENEUS-USA-2016043604

PATIENT
  Age: 62 Year
  Sex: Female
  Weight: 125.03 kg

DRUGS (7)
  1. REVLIMID [Suspect]
     Active Substance: LENALIDOMIDE
     Route: 048
     Dates: start: 201409
  2. NINLARO [Suspect]
     Active Substance: IXAZOMIB
     Indication: PLASMA CELL MYELOMA
     Dosage: 4 MILLIGRAM
     Route: 065
     Dates: start: 20160218
  3. REVLIMID [Suspect]
     Active Substance: LENALIDOMIDE
     Dosage: 40 MILLIGRAM
     Route: 048
     Dates: start: 201404
  4. REVLIMID [Suspect]
     Active Substance: LENALIDOMIDE
     Indication: PLASMA CELL MYELOMA
     Route: 048
     Dates: start: 201403
  5. DEXAMETHASONE. [Concomitant]
     Active Substance: DEXAMETHASONE
     Indication: PLASMA CELL MYELOMA
     Route: 065
     Dates: start: 20160218
  6. REVLIMID [Suspect]
     Active Substance: LENALIDOMIDE
     Route: 048
     Dates: start: 201411
  7. REVLIMID [Suspect]
     Active Substance: LENALIDOMIDE
     Route: 048
     Dates: start: 20160218

REACTIONS (9)
  - Peripheral swelling [Unknown]
  - White blood cell count decreased [Recovering/Resolving]
  - Hypoaesthesia [Recovered/Resolved]
  - Constipation [Unknown]
  - Haemoglobin decreased [Unknown]
  - Rash [Unknown]
  - Abdominal tenderness [Unknown]
  - Muscular weakness [Unknown]
  - Platelet count decreased [Recovering/Resolving]

NARRATIVE: CASE EVENT DATE: 20160601
